FAERS Safety Report 4675103-7 (Version None)
Quarter: 2005Q2

REPORT INFORMATION
  Report Type: 
  Country: None (occurrence: None)
  Receive Date: 20050525
  Receipt Date: 20050510
  Transmission Date: 20051028
  Serious: Yes (Hospitalization, Other)
  Sender: FDA-Public Use
  Company Number: 214234

PATIENT
  Age: 17 Year
  Sex: Male

DRUGS (2)
  1. MABTHERA(RITUXIMAB) CONC FOR SOLUTION FOR INFUSION [Suspect]
     Indication: ANAEMIA HAEMOLYTIC AUTOIMMUNE
     Dosage: 375 MG/M2, INTRAVENOUS
     Route: 042
     Dates: start: 20050101, end: 20050101
  2. UNSPECIFIED MEDICATIONS (GENERIC COMPONENT(S) NOT KNOWN) [Concomitant]

REACTIONS (3)
  - ABSCESS [None]
  - DEMYELINATION [None]
  - MYELITIS [None]
